FAERS Safety Report 6224260-X (Version None)
Quarter: 2009Q2

REPORT INFORMATION
  Report Type: 
  Country: None (occurrence: None)
  Receive Date: 20090612
  Receipt Date: 20090413
  Transmission Date: 20091009
  Serious: No
  Sender: FDA-Public Use
  Company Number: US-ABBOTT-09P-163-0563005-00

PATIENT
  Sex: Female
  Weight: 114.86 kg

DRUGS (3)
  1. HUMIRA [Suspect]
     Indication: CROHN'S DISEASE
     Dates: start: 20080707, end: 20090216
  2. ASACOL [Concomitant]
     Indication: CROHN'S DISEASE
  3. UNKNOWN MEDICATION [Concomitant]
     Indication: CROHN'S DISEASE

REACTIONS (6)
  - ABDOMINAL DISTENSION [None]
  - ABDOMINAL PAIN [None]
  - CONSTIPATION [None]
  - DRUG INEFFECTIVE [None]
  - INTESTINAL OBSTRUCTION [None]
  - NAUSEA [None]
